FAERS Safety Report 5366357-2 (Version None)
Quarter: 2007Q2

REPORT INFORMATION
  Report Type: 
  Country: None (occurrence: None)
  Receive Date: 20070620
  Receipt Date: 20070620
  Transmission Date: 20071010
  Serious: Yes (Hospitalization)
  Sender: FDA-Public Use
  Company Number: None

PATIENT
  Age: 63 Year
  Sex: Male
  Weight: 65 kg

DRUGS (1)
  1. CITALOPRAM HYDROBROMIDE [Suspect]
     Indication: DEPRESSION
     Dosage: DAILY PO
     Route: 048

REACTIONS (5)
  - ANXIETY [None]
  - DIZZINESS [None]
  - HEADACHE [None]
  - NAUSEA [None]
  - VOMITING [None]
